FAERS Safety Report 14046763 (Version 3)
Quarter: 2018Q2

REPORT INFORMATION
  Report Type: Report from Study
  Country: MX (occurrence: MX)
  Receive Date: 20171005
  Receipt Date: 20180415
  Transmission Date: 20180711
  Serious: Yes (Death)
  Sender: FDA-Public Use
  Company Number: PHHY2017MX146038

PATIENT
  Sex: Male
  Weight: 74 kg

DRUGS (6)
  1. ENTRESTO [Suspect]
     Active Substance: SACUBITRIL\VALSARTAN
     Indication: BLOOD PRESSURE ABNORMAL
     Dosage: 1.5 DF (VARIED FROM 0.5 TO 1.5), UNK
     Route: 048
     Dates: start: 201607, end: 201707
  2. FINASTERIDE. [Concomitant]
     Active Substance: FINASTERIDE
     Indication: PROSTATIC DISORDER
     Route: 065
  3. VIVITAR [Concomitant]
     Indication: PRODUCT USED FOR UNKNOWN INDICATION
     Route: 065
  4. ENTRESTO [Suspect]
     Active Substance: SACUBITRIL\VALSARTAN
     Indication: PLATELET COUNT DECREASED
     Dosage: 2 DF (50 MG), QD
     Route: 065
  5. METICORTEN [Concomitant]
     Active Substance: PREDNISONE
     Indication: PLATELET COUNT ABNORMAL
     Dosage: 2 DF, QD
     Route: 065
     Dates: start: 201411
  6. CONCOR [Concomitant]
     Active Substance: BISOPROLOL FUMARATE
     Indication: PRODUCT USED FOR UNKNOWN INDICATION
     Route: 065

REACTIONS (7)
  - Product use in unapproved indication [Unknown]
  - Metastases to spleen [Fatal]
  - Platelet count decreased [Unknown]
  - Inappropriate schedule of drug administration [Unknown]
  - Wrong technique in product usage process [Unknown]
  - Dehydration [Unknown]
  - Drug prescribing error [Unknown]
